FAERS Safety Report 4954851-5 (Version None)
Quarter: 2006Q1

REPORT INFORMATION
  Report Type: 
  Country: None (occurrence: None)
  Receive Date: 20060322
  Receipt Date: 20060302
  Transmission Date: 20060701
  Serious: Yes (Other)
  Sender: FDA-Public Use
  Company Number: CA200603001162

PATIENT
  Age: 23 Year
  Sex: Male

DRUGS (1)
  1. STRATTERA [Suspect]
     Indication: ATTENTION DEFICIT/HYPERACTIVITY DISORDER
     Dosage: 40 MG

REACTIONS (3)
  - INTENTIONAL SELF-INJURY [None]
  - SUICIDAL IDEATION [None]
  - THERMAL BURN [None]
